FAERS Safety Report 5715027-7 (Version None)
Quarter: 2008Q2

REPORT INFORMATION
  Report Type: 
  Country: None (occurrence: None)
  Receive Date: 20080423
  Receipt Date: 20080415
  Transmission Date: 20081010
  Serious: Yes (Other)
  Sender: FDA-Public Use
  Company Number: PHEH2008US02754

PATIENT
  Age: 50 Year
  Sex: Female

DRUGS (4)
  1. ZOMETA [Suspect]
     Indication: OSTEOPOROSIS
     Dosage: 4 MG, ONCE/SINGLE
     Dates: start: 20080107
  2. ESTROGEL [Concomitant]
     Dosage: 0.06 %, QD
  3. HYDROCODONE BITARTRATE [Concomitant]
     Dosage: UNK, PRN
  4. PHENERGAN ^AVENTIS PHARMA^ [Concomitant]
     Dosage: 25 MG, PRN

REACTIONS (38)
  - ANTERIOR CHAMBER CELL [None]
  - ARTHRITIS [None]
  - ASTHENOPIA [None]
  - BLOOD PRESSURE FLUCTUATION [None]
  - CORNEAL OPACITY [None]
  - DIZZINESS [None]
  - DYSPNOEA [None]
  - EYE DISORDER [None]
  - EYE IRRITATION [None]
  - EYE MOVEMENT DISORDER [None]
  - EYE PAIN [None]
  - EYE PRURITUS [None]
  - EYELID PTOSIS [None]
  - FACIAL PAIN [None]
  - GASTROINTESTINAL ULCER [None]
  - GASTROOESOPHAGEAL REFLUX DISEASE [None]
  - HEADACHE [None]
  - INSOMNIA [None]
  - IRIDOCYCLITIS [None]
  - IRIS DISORDER [None]
  - IRITIS [None]
  - LACRIMATION INCREASED [None]
  - MACULOPATHY [None]
  - MIGRAINE [None]
  - OCULAR HYPERAEMIA [None]
  - OCULAR HYPERTENSION [None]
  - OSTEOPOROSIS [None]
  - PHOTOPHOBIA [None]
  - PUPILS UNEQUAL [None]
  - RASH [None]
  - SKIN SWELLING [None]
  - URINARY TRACT INFECTION [None]
  - UVEITIS [None]
  - VISION BLURRED [None]
  - VISUAL ACUITY REDUCED [None]
  - VITREOUS DISORDER [None]
  - VITREOUS FLOATERS [None]
  - VITREOUS OPACITIES [None]
